FAERS Safety Report 7966980-2 (Version None)
Quarter: 2011Q4

REPORT INFORMATION
  Report Type: 
  Country: None (occurrence: None)
  Receive Date: 20111209
  Receipt Date: 20111129
  Transmission Date: 20120403
  Serious: Yes (Hospitalization)
  Sender: FDA-Public Use
  Company Number: CA-JNJFOC-20111112512

PATIENT
  Sex: Male
  Weight: 88.1 kg

DRUGS (2)
  1. REMICADE [Suspect]
     Indication: CROHN'S DISEASE
     Route: 042
     Dates: start: 20111129, end: 20111129
  2. REMICADE [Suspect]
     Route: 042

REACTIONS (3)
  - INTESTINAL PERFORATION [None]
  - INTESTINAL OBSTRUCTION [None]
  - NEOPLASM OF APPENDIX [None]
